FAERS Safety Report 6124408-1 (Version None)
Quarter: 2009Q1

REPORT INFORMATION
  Report Type: 
  Country: None (occurrence: None)
  Receive Date: 20090319
  Receipt Date: 20090309
  Transmission Date: 20090719
  Serious: Yes (Death)
  Sender: FDA-Public Use
  Company Number: US-WYE-H08497809

PATIENT
  Sex: Male

DRUGS (7)
  1. PROTONIX [Suspect]
     Dosage: UNKNOWN
  2. CEFEPIME [Suspect]
     Dosage: UNKNOWN
  3. MICAFUNGIN SODIUM [Suspect]
     Dosage: UNKNOWN
  4. DIPRIVAN [Suspect]
     Dosage: UNKNOWN
  5. PIPERACILLIN SODIUM AND TAZOBACTAM SODIUM [Suspect]
     Dosage: UNKNOWN
  6. PROCRIT [Suspect]
     Dosage: UNKNOWN
  7. NOREPINEPHRINE [Suspect]
     Dosage: UNKNOWN

REACTIONS (1)
  - SEPSIS [None]
